FAERS Safety Report 7131492-5 (Version None)
Quarter: 2010Q4

REPORT INFORMATION
  Report Type: 
  Country: None (occurrence: None)
  Receive Date: 20101201
  Receipt Date: 20101118
  Transmission Date: 20110411
  Serious: Yes (Disabling)
  Sender: FDA-Public Use
  Company Number: GB-PFIZER INC-2010160655

PATIENT
  Age: 83 Year
  Sex: Female

DRUGS (1)
  1. AMIODARONE HCL [Suspect]
     Dosage: 200 MG, 1X/DAY
     Route: 048
     Dates: start: 20100424, end: 20100828

REACTIONS (6)
  - AGEUSIA [None]
  - ATAXIA [None]
  - CONFUSIONAL STATE [None]
  - DECREASED APPETITE [None]
  - OPTIC NEURITIS [None]
  - PAPILLOEDEMA [None]
